FAERS Safety Report 25944702 (Version 1)
Quarter: 2025Q4

REPORT INFORMATION
  Report Type: Spontaneous
  Country: US (occurrence: None)
  Receive Date: 20251021
  Receipt Date: 20251021
  Transmission Date: 20260117
  Serious: Yes (Hospitalization)
  Sender: FDA-CTU
  Company Number: None

PATIENT
  Sex: Female

DRUGS (1)
  1. DEFERIPRONE [Suspect]
     Active Substance: DEFERIPRONE
     Indication: Haemochromatosis
     Dosage: OTHER FREQUENCY : 3 TIMES A DAY;?
     Route: 048
     Dates: start: 20250425

REACTIONS (1)
  - Sickle cell anaemia with crisis [None]
